FAERS Safety Report 22153475 (Version 1)
Quarter: 2023Q1

REPORT INFORMATION
  Report Type: Spontaneous
  Country: US (occurrence: US)
  Receive Date: 20230329
  Receipt Date: 20230329
  Transmission Date: 20230418
  Serious: No
  Sender: FDA-Public Use
  Company Number: US-ABBVIE-4706421

PATIENT
  Sex: Female

DRUGS (1)
  1. IMBRUVICA [Suspect]
     Active Substance: IBRUTINIB
     Indication: Product used for unknown indication
     Dosage: 140 MG TAKE 2 TABLETS  EVERY OTHER DAY ALTERNATING WITH 3 TABLETS BY MOUTH EVERY OTHER DAY.
     Route: 048
     Dates: start: 20170120

REACTIONS (1)
  - Unevaluable event [Unknown]
